FAERS Safety Report 9824680 (Version 2)
Quarter: 2014Q1

REPORT INFORMATION
  Report Type: Report from Study
  Country: US (occurrence: US)
  Receive Date: 20140117
  Receipt Date: 20140204
  Transmission Date: 20141002
  Serious: Yes (Hospitalization)
  Sender: FDA-Public Use
  Company Number: US-ROCHE-1333769

PATIENT
  Age: 57 Year
  Sex: Female

DRUGS (3)
  1. XELODA [Suspect]
     Indication: SMALL INTESTINE CARCINOMA
     Dosage: THEN 2ND CYCLE 4 AND 3
     Route: 048
     Dates: start: 201310, end: 20131220
  2. PRILOSEC [Concomitant]
  3. IMODIUM [Concomitant]
     Indication: DIARRHOEA

REACTIONS (7)
  - Vomiting [Recovered/Resolved]
  - Diarrhoea [Recovered/Resolved]
  - Abdominal pain upper [Recovering/Resolving]
  - Intestinal ulcer [Recovering/Resolving]
  - Weight decreased [Recovered/Resolved]
  - Skin exfoliation [Unknown]
  - Local swelling [Unknown]
